FAERS Safety Report 8375147-8 (Version None)
Quarter: 2012Q2

REPORT INFORMATION
  Report Type: 
  Country: None (occurrence: None)
  Receive Date: 20120521
  Receipt Date: 20120509
  Transmission Date: 20120825
  Serious: Yes (Other)
  Sender: FDA-Public Use
  Company Number: JP-GILEAD-2012-0051249

PATIENT
  Sex: Male

DRUGS (3)
  1. HEPSERA [Suspect]
     Indication: HEPATITIS B
     Dosage: 10 MG, QD
     Route: 048
     Dates: start: 20050119, end: 20110801
  2. HEPSERA [Suspect]
     Dosage: 10 MG, QOD
     Route: 048
     Dates: start: 20110801
  3. LAMIVUDINE (EPIVIR HBV) [Suspect]
     Indication: HEPATITIS B
     Dosage: 100 MG, QD
     Route: 048
     Dates: start: 20001222

REACTIONS (7)
  - BLOOD ALKALINE PHOSPHATASE INCREASED [None]
  - FANCONI SYNDROME ACQUIRED [None]
  - ARTHRALGIA [None]
  - OSTEOMALACIA [None]
  - RENAL DISORDER [None]
  - BLOOD CREATININE INCREASED [None]
  - RENAL TUBULAR ACIDOSIS [None]
